FAERS Safety Report 5352841-4 (Version None)
Quarter: 2007Q2

REPORT INFORMATION
  Report Type: 
  Country: None (occurrence: None)
  Receive Date: 20070611
  Receipt Date: 20070530
  Transmission Date: 20071010
  Serious: Yes (Hospitalization, Other)
  Sender: FDA-Public Use
  Company Number: US-ELI_LILLY_AND_COMPANY-US200703004562

PATIENT
  Age: 59 Year
  Sex: Female
  Weight: 99.773 kg

DRUGS (3)
  1. ZYPREXA [Suspect]
     Indication: SCHIZOPHRENIA
     Dosage: 2.5 MG, UNK
     Dates: start: 19990101, end: 20041101
  2. ZYPREXA [Suspect]
     Dosage: 10 MG, UNK
  3. SEROQUEL [Concomitant]
     Dates: start: 20060101

REACTIONS (7)
  - ACUTE MYOCARDIAL INFARCTION [None]
  - DIABETES MELLITUS [None]
  - DIABETIC COMA [None]
  - DIABETIC KETOACIDOSIS [None]
  - HYPERGLYCAEMIA [None]
  - MYOCARDIAL ISCHAEMIA [None]
  - PANCREATITIS [None]
